FAERS Safety Report 12198784 (Version 1)
Quarter: 2016Q1

REPORT INFORMATION
  Report Type: Other
  Country: FR (occurrence: FR)
  Receive Date: 20160322
  Receipt Date: 20160322
  Transmission Date: 20160526
  Serious: Yes (Other)
  Sender: FDA-Public Use
  Company Number: FR-LUPIN PHARMACEUTICALS INC.-2016-01076

PATIENT
  Age: 66 Year
  Sex: Male

DRUGS (5)
  1. CLARITHROMYCIN. [Interacting]
     Active Substance: CLARITHROMYCIN
     Route: 065
  2. LINEZOLID. [Interacting]
     Active Substance: LINEZOLID
     Indication: MYCOBACTERIUM CHELONAE INFECTION
     Route: 065
  3. CLARITHROMYCIN. [Suspect]
     Active Substance: CLARITHROMYCIN
     Indication: MYCOBACTERIUM CHELONAE INFECTION
     Route: 065
  4. PREDNISONE. [Concomitant]
     Active Substance: PREDNISONE
     Indication: IMMUNOSUPPRESSANT DRUG THERAPY
     Route: 065
  5. METHOTREXATE [Concomitant]
     Active Substance: METHOTREXATE
     Indication: IMMUNOSUPPRESSANT DRUG THERAPY
     Route: 065

REACTIONS (4)
  - Drug interaction [Unknown]
  - Renal impairment [Recovered/Resolved]
  - Pancytopenia [Recovered/Resolved]
  - Diarrhoea [Recovered/Resolved]
